FAERS Safety Report 7078512-4 (Version None)
Quarter: 2010Q4

REPORT INFORMATION
  Report Type: 
  Country: None (occurrence: None)
  Receive Date: 20101102
  Receipt Date: 20101022
  Transmission Date: 20110411
  Serious: Yes (Hospitalization)
  Sender: FDA-Public Use
  Company Number: CA-JNJFOC-20101002696

PATIENT
  Sex: Female

DRUGS (6)
  1. REMICADE [Suspect]
     Indication: COLITIS ULCERATIVE
     Route: 042
  2. REMICADE [Suspect]
     Route: 042
  3. MESALAMINE [Concomitant]
     Route: 048
  4. IMURAN [Concomitant]
     Route: 048
  5. RISEDRONATE SODIUM [Concomitant]
  6. PREDNISONE [Concomitant]

REACTIONS (4)
  - ASTHENIA [None]
  - DIZZINESS [None]
  - NAUSEA [None]
  - UTERINE DILATION AND CURETTAGE [None]
